FAERS Safety Report 13196199 (Version 7)
Quarter: 2017Q2

REPORT INFORMATION
  Report Type: Report from Study
  Country: AU (occurrence: AU)
  Receive Date: 20170208
  Receipt Date: 20170523
  Transmission Date: 20170830
  Serious: Yes (Hospitalization)
  Sender: FDA-Public Use
  Company Number: AU-ROCHE-1888320

PATIENT
  Age: 60 Year
  Sex: Female
  Weight: 56.5 kg

DRUGS (10)
  1. MTIG7192A [Suspect]
     Active Substance: INVESTIGATIONAL PRODUCT
     Indication: CHOLANGIOCARCINOMA
     Dosage: MOST RECENT DOSE (8 MG) PRIOR TO THE EVENTS ADMINISTERED ON 24/JAN/2017 STARTING AT 11:00
     Route: 042
     Dates: start: 20161205, end: 20170124
  2. ATEZOLIZUMAB [Suspect]
     Active Substance: ATEZOLIZUMAB
     Indication: CHOLANGIOCARCINOMA
     Dosage: MOST RECENT DOSE PRIOR TO THE EVENTS ADMINISTERED ON 24/JAN/2017, STARTING AT 13:30
     Route: 042
     Dates: start: 20170124, end: 20170124
  3. LORATADINE. [Concomitant]
     Active Substance: LORATADINE
     Indication: SEASONAL ALLERGY
     Route: 048
     Dates: start: 20161212, end: 201701
  4. MACROGOL [Concomitant]
     Active Substance: POLYETHYLENE GLYCOLS
     Dosage: 1 OTHER
     Route: 048
     Dates: start: 20170203, end: 20170208
  5. PARACETAMOL [Concomitant]
     Active Substance: ACETAMINOPHEN
     Indication: ARTHRALGIA
     Route: 048
     Dates: start: 20161215
  6. MACROGOL [Concomitant]
     Active Substance: POLYETHYLENE GLYCOLS
     Indication: CONSTIPATION PROPHYLAXIS
     Dosage: 1 OTHER
     Route: 048
     Dates: start: 20170206
  7. CHLORVESCENT [Concomitant]
     Active Substance: POTASSIUM CHLORIDE
     Indication: HYPOKALAEMIA
     Route: 048
     Dates: start: 20170203, end: 20170203
  8. DOCUSATE-SENNA [Concomitant]
     Indication: CONSTIPATION PROPHYLAXIS
     Route: 048
     Dates: start: 20170203, end: 20170218
  9. PANTOPRAZOLE [Concomitant]
     Active Substance: PANTOPRAZOLE
     Indication: PROPHYLAXIS
     Route: 048
     Dates: start: 20170202
  10. ONDANSETRON [Concomitant]
     Active Substance: ONDANSETRON
     Indication: NAUSEA
     Route: 048
     Dates: start: 20170201, end: 20170201

REACTIONS (3)
  - Arthralgia [Recovering/Resolving]
  - Lipase increased [Recovered/Resolved]
  - Amylase increased [Recovered/Resolved]

NARRATIVE: CASE EVENT DATE: 20170126
